FAERS Safety Report 19445326 (Version 2)
Quarter: 2021Q3

REPORT INFORMATION
  Report Type: Spontaneous
  Country: US (occurrence: US)
  Receive Date: 20210622
  Receipt Date: 20210723
  Transmission Date: 20211014
  Serious: Yes (Other)
  Sender: FDA-Public Use
  Company Number: US-JNJFOC-20210626626

PATIENT
  Age: 27 Year
  Sex: Male

DRUGS (4)
  1. NEUTROGENA RAPID CLEAR STUBBORN ACNE CLEANSER [Suspect]
     Active Substance: BENZOYL PEROXIDE
     Indication: PRODUCT USED FOR UNKNOWN INDICATION
     Dosage: 3 QUARTERS, ONCE A DAY
     Route: 061
     Dates: start: 20210608
  2. NEUTROGENA DEEP CLEAN COOLING SCRUB [Suspect]
     Active Substance: SALICYLIC ACID
     Indication: PRODUCT USED FOR UNKNOWN INDICATION
     Dosage: 3 QUARTERS, ONCE A DAY
     Route: 061
     Dates: start: 20210608
  3. NEUTROGENA AGE SHIELD FACE OIL FREE SUNSCRN BR^D SPECT SPF 70 (AV\HOM\OCTI\OCTO) [Suspect]
     Active Substance: AVOBENZONE\HOMOSALATE\OCTISALATE\OCTOCRYLENE
     Indication: PRODUCT USED FOR UNKNOWN INDICATION
     Dosage: 3 QUARTERS, ONCE A DAY
     Route: 061
     Dates: start: 20210608
  4. NTG LIP MOISTURIZE 0.15OZ [OCTINOXATE\OXYBENZONE] [Suspect]
     Active Substance: OCTINOXATE\OXYBENZONE
     Indication: PRODUCT USED FOR UNKNOWN INDICATION
     Route: 061

REACTIONS (2)
  - Application site inflammation [Recovered/Resolved]
  - Application site urticaria [Recovered/Resolved]

NARRATIVE: CASE EVENT DATE: 20210608
